FAERS Safety Report 19144801 (Version 1)
Quarter: 2021Q2

REPORT INFORMATION
  Report Type: Spontaneous
  Country: US (occurrence: US)
  Receive Date: 20210415
  Receipt Date: 20210415
  Transmission Date: 20210717
  Serious: No
  Sender: FDA-Public Use
  Company Number: None

PATIENT
  Sex: Male
  Weight: 15 kg

DRUGS (1)
  1. VIGABATRIN 500MG PACKET [Suspect]
     Active Substance: VIGABATRIN
     Route: 048

REACTIONS (2)
  - Off label use [None]
  - Product prescribing issue [None]
